FAERS Safety Report 10012900 (Version 1)
Quarter: 2014Q1

REPORT INFORMATION
  Report Type: Spontaneous
  Country: US (occurrence: US)
  Receive Date: 20140314
  Receipt Date: 20140314
  Transmission Date: 20141002
  Serious: Yes (Death, Hospitalization, Other)
  Sender: FDA-Public Use
  Company Number: US-TAKEDA-2014TUS001750

PATIENT
  Sex: 0

DRUGS (1)
  1. LANSOPRAZOLE [Suspect]
     Dosage: UNK

REACTIONS (10)
  - Multi-organ failure [Fatal]
  - Drug reaction with eosinophilia and systemic symptoms [Fatal]
  - Renal failure acute [Unknown]
  - Respiratory failure [Unknown]
  - Rash erythematous [Unknown]
  - Rash maculo-papular [Unknown]
  - Palmar erythema [Unknown]
  - Hyperbilirubinaemia [Unknown]
  - Hypotension [Unknown]
  - Pruritus [Unknown]
